FAERS Safety Report 8058482-2 (Version None)
Quarter: 2012Q1

REPORT INFORMATION
  Report Type: 
  Country: None (occurrence: None)
  Receive Date: 20120120
  Receipt Date: 20120113
  Transmission Date: 20120608
  Serious: Yes (Other)
  Sender: FDA-Public Use
  Company Number: US-PFIZER INC-2012012671

PATIENT
  Sex: Female
  Weight: 63.492 kg

DRUGS (6)
  1. LASIX [Concomitant]
     Indication: OEDEMA PERIPHERAL
     Dosage: 20 MG, UNK
  2. TIAZAC [Concomitant]
     Dosage: 180 MG, UNK
  3. TIKOSYN [Suspect]
     Indication: ARRHYTHMIA
     Dosage: 250 UG, 2X/DAY
     Route: 048
     Dates: start: 20040301
  4. SYNTHROID [Concomitant]
     Indication: THYROID DISORDER
     Dosage: 0.150 UG, UNK
  5. TOPROL-XL [Concomitant]
     Indication: CARDIAC DISORDER
     Dosage: 50 MG, UNK
  6. COUMADIN [Concomitant]
     Indication: COAGULOPATHY
     Dosage: UNK

REACTIONS (5)
  - THROMBOSIS [None]
  - HAEMOGLOBIN DECREASED [None]
  - ARTHROPATHY [None]
  - COUGH [None]
  - DRUG LEVEL DECREASED [None]
